FAERS Safety Report 10659258 (Version 1)
Quarter: 2014Q4

REPORT INFORMATION
  Report Type: Spontaneous
  Country: US (occurrence: None)
  Receive Date: 20141205
  Receipt Date: 20141205
  Transmission Date: 20150529
  Serious: Yes (Hospitalization)
  Sender: FDA-Public Use
  Company Number: 163-POMAL-14085041

PATIENT
  Age: 78 Year
  Sex: Male

DRUGS (9)
  1. CARVEDILOL. [Concomitant]
     Active Substance: CARVEDILOL
  2. DEXAMETHASONE. [Concomitant]
     Active Substance: DEXAMETHASONE
  3. LANTUS [Concomitant]
     Active Substance: INSULIN GLARGINE
  4. HYDROCODONE/ACETAMINOPHEN (REMEDEINE) [Concomitant]
  5. PANTOPRAZOLE SODIUM [Concomitant]
     Active Substance: PANTOPRAZOLE SODIUM
  6. POTASSIUM [Concomitant]
     Active Substance: POTASSIUM
  7. NOVOLOG [Concomitant]
     Active Substance: INSULIN ASPART
  8. POMALYST [Suspect]
     Active Substance: POMALIDOMIDE
     Indication: PLASMA CELL MYELOMA
     Dosage: 4MG, 21 IN 21D, PO
     Route: 048
     Dates: start: 20140807
  9. BACTRIM [Concomitant]
     Active Substance: SULFAMETHOXAZOLE\TRIMETHOPRIM

REACTIONS (3)
  - Cardiac failure [None]
  - Renal failure [None]
  - Anaemia [None]

NARRATIVE: CASE EVENT DATE: 20140810
